FAERS Safety Report 5609509-6 (Version None)
Quarter: 2008Q1

REPORT INFORMATION
  Report Type: 
  Country: None (occurrence: None)
  Receive Date: 20080111
  Receipt Date: 20071102
  Transmission Date: 20080703
  Serious: Yes (Hospitalization, Other)
  Sender: FDA-Public Use
  Company Number: HQWYE450327JUL04

PATIENT
  Age: 57 Year
  Sex: Female

DRUGS (2)
  1. PREMPRO [Suspect]
  2. PREMARIN [Suspect]

REACTIONS (4)
  - BREAST CANCER [None]
  - CHOLECYSTITIS [None]
  - EMBOLISM [None]
  - MYOCARDIAL INFARCTION [None]
